FAERS Safety Report 5817235-3 (Version None)
Quarter: 2008Q3

REPORT INFORMATION
  Report Type: 
  Country: None (occurrence: None)
  Receive Date: 20080722
  Receipt Date: 20080709
  Transmission Date: 20090109
  Serious: Yes (Hospitalization)
  Sender: FDA-Public Use
  Company Number: BE-AMGEN-UK282567

PATIENT
  Sex: Female

DRUGS (14)
  1. PANITUMUMAB [Suspect]
     Indication: SQUAMOUS CELL CARCINOMA
     Route: 042
     Dates: start: 20080522
  2. FLUOROURACIL [Suspect]
     Route: 041
     Dates: start: 20080522
  3. CISPLATIN [Concomitant]
     Route: 041
     Dates: start: 20080522
  4. DOCETAXEL [Concomitant]
     Route: 041
     Dates: start: 20080522
  5. BISOPROLOL FUMARATE [Concomitant]
     Route: 048
     Dates: start: 20070501, end: 20080611
  6. MICARDIS [Concomitant]
     Route: 048
     Dates: start: 20070501, end: 20080623
  7. ALPRAZOLAM [Concomitant]
     Route: 048
     Dates: start: 20080515
  8. ZANTAC [Concomitant]
     Route: 048
     Dates: start: 20080524, end: 20080528
  9. ZANTAC [Concomitant]
     Route: 048
     Dates: start: 20080528, end: 20080620
  10. LYSOMUCIL [Concomitant]
     Route: 048
     Dates: start: 20080524
  11. CORSODYL [Concomitant]
     Route: 048
     Dates: start: 20080516
  12. DUOVENT [Concomitant]
     Route: 055
     Dates: start: 20080521
  13. MEDROL [Concomitant]
     Route: 048
     Dates: start: 20080521, end: 20080523
  14. MOVICOL [Concomitant]
     Route: 048
     Dates: start: 20080515

REACTIONS (3)
  - MYOCARDIAL ISCHAEMIA [None]
  - NEUTROPENIA [None]
  - SYNCOPE [None]
